FAERS Safety Report 10608616 (Version 2)
Quarter: 2014Q4

REPORT INFORMATION
  Report Type: Spontaneous
  Country: FR (occurrence: FR)
  Receive Date: 20141125
  Receipt Date: 20141209
  Transmission Date: 20150529
  Serious: Yes (Death, Hospitalization, Other)
  Sender: FDA-Public Use
  Company Number: FR-BAXTER-2014BAX067795

PATIENT
  Age: 72 Year
  Sex: Male

DRUGS (14)
  1. CHLORAMINOPHENE [Suspect]
     Active Substance: CHLORAMBUCIL
     Route: 042
     Dates: start: 201105, end: 201109
  2. CARBOPLATINE [Suspect]
     Active Substance: CARBOPLATIN
     Route: 065
     Dates: start: 20140416, end: 20140416
  3. ENDOXAN 1000 MG, POUDRE POUR SOLUTION INJECTABLE [Suspect]
     Active Substance: CYCLOPHOSPHAMIDE
     Indication: B-CELL LYMPHOMA RECURRENT
     Route: 042
     Dates: start: 2007, end: 2008
  4. CARBOPLATINE [Suspect]
     Active Substance: CARBOPLATIN
     Indication: CHEMOTHERAPY
     Route: 065
     Dates: start: 20140319, end: 20140319
  5. LEVACT [Suspect]
     Active Substance: BENDAMUSTINE HYDROCHLORIDE
     Indication: PRODUCT USED FOR UNKNOWN INDICATION
     Route: 042
     Dates: start: 20120927, end: 20120927
  6. MABTHERA [Suspect]
     Active Substance: RITUXIMAB
     Indication: PRODUCT USED FOR UNKNOWN INDICATION
     Route: 042
     Dates: start: 20110509, end: 201109
  7. CHLORAMINOPHENE [Suspect]
     Active Substance: CHLORAMBUCIL
     Route: 042
     Dates: end: 2012
  8. PEMETREXED [Suspect]
     Active Substance: PEMETREXED
     Route: 065
     Dates: start: 20140416, end: 20140416
  9. FLUDARABINE [Suspect]
     Active Substance: FLUDARABINE PHOSPHATE
     Indication: B-CELL LYMPHOMA RECURRENT
     Route: 042
     Dates: start: 2007, end: 2008
  10. LEVACT [Suspect]
     Active Substance: BENDAMUSTINE HYDROCHLORIDE
     Route: 042
     Dates: start: 20140928, end: 20140928
  11. MABTHERA [Suspect]
     Active Substance: RITUXIMAB
     Route: 042
     Dates: start: 20120920, end: 20121108
  12. LEVACT [Suspect]
     Active Substance: BENDAMUSTINE HYDROCHLORIDE
     Route: 042
     Dates: start: 20121108, end: 20121108
  13. CHLORAMINOPHENE [Suspect]
     Active Substance: CHLORAMBUCIL
     Indication: B-CELL LYMPHOMA
     Route: 048
     Dates: start: 200204, end: 200404
  14. PEMETREXED [Suspect]
     Active Substance: PEMETREXED
     Indication: CHEMOTHERAPY
     Route: 065
     Dates: start: 20140319, end: 20140319

REACTIONS (13)
  - Calculus bladder [Unknown]
  - Lung neoplasm malignant [Fatal]
  - Meningitis aseptic [Unknown]
  - Transitional cell carcinoma [Recovered/Resolved]
  - Cytomegalovirus infection [Unknown]
  - Epistaxis [Unknown]
  - Eczema asteatotic [Unknown]
  - General physical health deterioration [Unknown]
  - Febrile bone marrow aplasia [Unknown]
  - Pleural effusion [Unknown]
  - Thrombocytopenia [Unknown]
  - CSF glucose decreased [Unknown]
  - Histiocytosis haematophagic [Unknown]

NARRATIVE: CASE EVENT DATE: 2007
